FAERS Safety Report 21177824 (Version 2)
Quarter: 2022Q4

REPORT INFORMATION
  Report Type: Report from Study
  Country: FR (occurrence: None)
  Receive Date: 20220805
  Receipt Date: 20221003
  Transmission Date: 20230112
  Serious: Yes (Hospitalization)
  Sender: FDA-Public Use
  Company Number: FR-ROCHE-3155458

PATIENT
  Age: 61 Year
  Sex: Male
  Weight: 52 kg

DRUGS (4)
  1. ATEZOLIZUMAB [Suspect]
     Active Substance: ATEZOLIZUMAB
     Indication: Hormone-refractory prostate cancer
     Route: 041
     Dates: start: 20220523, end: 20220704
  2. CABOZANTINIB [Suspect]
     Active Substance: CABOZANTINIB
     Indication: Hormone-refractory prostate cancer
     Route: 048
     Dates: start: 20210629, end: 20220704
  3. CABOZANTINIB [Suspect]
     Active Substance: CABOZANTINIB
     Dosage: ON 04/JUL/2022, THE PATIENT RECEIVED THE MOST RECENT DOSE OF CABOZANTINIB 40MG QD PRIOR TO THE EVENT
     Route: 048
     Dates: start: 20220704, end: 20220704
  4. DOCETAXEL [Suspect]
     Active Substance: DOCETAXEL
     Indication: Product used for unknown indication
     Route: 065
     Dates: start: 20220711

REACTIONS (2)
  - Acute kidney injury [Recovered/Resolved]
  - Haematuria [Recovered/Resolved]

NARRATIVE: CASE EVENT DATE: 20220718
